FAERS Safety Report 8578743-8 (Version None)
Quarter: 2012Q3

REPORT INFORMATION
  Report Type: 
  Country: None (occurrence: None)
  Receive Date: 20120808
  Receipt Date: 20120801
  Transmission Date: 20120928
  Serious: Yes (Death, Other)
  Sender: FDA-Public Use
  Company Number: US-CELGENEUS-163-20785-12071637

PATIENT
  Sex: Female

DRUGS (7)
  1. M.V.I. [Concomitant]
     Dosage: 1
     Route: 065
  2. FISH OIL [Concomitant]
     Dosage: 1 DOSAGE FORMS
     Route: 048
  3. THALOMID [Suspect]
     Indication: MULTIPLE MYELOMA
     Dosage: 50 MILLIGRAM
     Route: 048
     Dates: start: 20120301, end: 20120401
  4. CAL-600 + VIT D [Concomitant]
     Route: 065
  5. CLARITIN [Concomitant]
     Dosage: 10 MILLIGRAM
     Route: 065
  6. FOLIC ACID [Concomitant]
     Dosage: 1 MILLIGRAM
     Route: 048
  7. TYLENOL [Concomitant]
     Dosage: 500 MILLIGRAM
     Route: 065

REACTIONS (3)
  - CEREBRAL HAEMORRHAGE [None]
  - PLATELET COUNT DECREASED [None]
  - MULTIPLE MYELOMA [None]
